FAERS Safety Report 16263409 (Version 1)
Quarter: 2019Q2

REPORT INFORMATION
  Report Type: Spontaneous
  Country: US (occurrence: US)
  Receive Date: 20190327
  Receipt Date: 20190327
  Transmission Date: 20190711
  Serious: Yes (Death)
  Sender: FDA-Public Use
  Company Number: None

PATIENT
  Age: 53 Year
  Sex: Male

DRUGS (1)
  1. LEVETIRACETA 500MG TAB [Suspect]
     Active Substance: LEVETIRACETAM
     Indication: GLIOBLASTOMA
     Route: 048
     Dates: start: 20190206

REACTIONS (1)
  - Death [None]

NARRATIVE: CASE EVENT DATE: 20190327
